FAERS Safety Report 7444138-3 (Version None)
Quarter: 2011Q2

REPORT INFORMATION
  Report Type: 
  Country: None (occurrence: None)
  Receive Date: 20110429
  Receipt Date: 20110422
  Transmission Date: 20111010
  Serious: Yes (Hospitalization)
  Sender: FDA-Public Use
  Company Number: US-SANOFI-AVENTIS-2011SA016787

PATIENT
  Age: 73 Year
  Sex: Male
  Weight: 78.7 kg

DRUGS (16)
  1. METOPROLOL [Concomitant]
     Indication: HYPERTENSION
     Dates: start: 20110226
  2. QUINAPRIL [Concomitant]
     Dates: start: 20110226
  3. CENTRUM SILVER [Concomitant]
     Dates: start: 20110226
  4. PLAVIX [Concomitant]
     Dates: start: 20110226
  5. LANTUS [Suspect]
     Dosage: DOSE:22 UNIT(S)
     Route: 058
     Dates: end: 20110226
  6. LEVOTHYROXINE SODIUM [Concomitant]
     Indication: HYPOTHYROIDISM
     Dates: start: 20110226
  7. VYTORIN [Concomitant]
     Dates: start: 20110226
  8. LOVAZA [Concomitant]
     Dates: start: 20110226
  9. ASPIRIN [Concomitant]
     Indication: HYPERTENSION
     Dates: start: 20110226
  10. BACTRIM DS [Concomitant]
     Route: 065
     Dates: start: 20110226
  11. TAMSULOSIN [Concomitant]
     Dates: start: 20110226
  12. NOVOLOG [Concomitant]
     Indication: DIABETES MELLITUS
     Dosage: 8-20 UNITS WITH MEALS
     Dates: start: 20110226
  13. METROCREAM [Concomitant]
  14. NIASPAN [Concomitant]
     Dates: start: 20110226
  15. NITRGLYCERIN TRANSDERMAL SYSTEM [Concomitant]
     Route: 065
     Dates: start: 20110226
  16. SOLOSTAR [Suspect]
     Dates: end: 20110226

REACTIONS (7)
  - NAUSEA [None]
  - URINARY TRACT INFECTION [None]
  - DIABETIC KETOACIDOSIS [None]
  - PRURITUS [None]
  - HYPERGLYCAEMIA [None]
  - VIRAL INFECTION [None]
  - HYPERSENSITIVITY [None]
